FAERS Safety Report 25210505 (Version 2)
Quarter: 2025Q2

REPORT INFORMATION
  Report Type: Spontaneous
  Country: CA (occurrence: CA)
  Receive Date: 20250417
  Receipt Date: 20250506
  Transmission Date: 20250717
  Serious: No
  Sender: IMMUNOCORE
  Company Number: CA-IMMUNOCORE, LTD-2025-IMC-003904

PATIENT

DRUGS (1)
  1. TEBENTAFUSP [Suspect]
     Active Substance: TEBENTAFUSP
     Indication: Uveal melanoma

REACTIONS (1)
  - Confusional state [Recovered/Resolved]
